FAERS Safety Report 12609811 (Version 3)
Quarter: 2016Q3

REPORT INFORMATION
  Report Type: Spontaneous
  Country: US (occurrence: US)
  Receive Date: 20160801
  Receipt Date: 20160815
  Transmission Date: 20161109
  Serious: No
  Sender: FDA-Public Use
  Company Number: US-BRISTOL-MYERS SQUIBB COMPANY-BMS-2016-061360

PATIENT
  Sex: Male

DRUGS (5)
  1. COUMADIN [Suspect]
     Active Substance: WARFARIN SODIUM
     Indication: ATRIAL FIBRILLATION
     Dosage: 45 MG, QWK
     Route: 048
     Dates: start: 2001
  2. COUMADIN [Interacting]
     Active Substance: WARFARIN SODIUM
     Dosage: 26 MG, QWK
     Route: 048
  3. DIFLUCAN [Interacting]
     Active Substance: FLUCONAZOLE
     Dosage: 30 MG, QWK
     Route: 065
  4. DIFLUCAN [Interacting]
     Active Substance: FLUCONAZOLE
     Indication: COCCIDIOIDOMYCOSIS
     Dosage: 45 MG, QWK
     Route: 065
  5. DIFLUCAN [Interacting]
     Active Substance: FLUCONAZOLE
     Dosage: 400 MG, UNK
     Route: 065

REACTIONS (3)
  - Abdominal pain upper [Recovered/Resolved]
  - International normalised ratio increased [Unknown]
  - Labelled drug-drug interaction medication error [Unknown]
